FAERS Safety Report 7206796-8 (Version None)
Quarter: 2011Q1

REPORT INFORMATION
  Report Type: 
  Country: None (occurrence: None)
  Receive Date: 20110103
  Receipt Date: 20101229
  Transmission Date: 20110831
  Serious: Yes (Death)
  Sender: FDA-Public Use
  Company Number: ES-SANOFI-AVENTIS-2010SA078360

PATIENT
  Age: 76 Year
  Sex: Male

DRUGS (7)
  1. OXALIPLATIN [Suspect]
     Indication: COLORECTAL CANCER
     Route: 042
     Dates: start: 20100614, end: 20100614
  2. BEVACIZUMAB [Suspect]
     Indication: COLORECTAL CANCER
     Route: 042
     Dates: start: 20100614, end: 20100614
  3. OMEPRAZOLE [Concomitant]
     Dates: end: 20101220
  4. OXALIPLATIN [Suspect]
     Route: 042
  5. DIPYRONE [Concomitant]
     Dates: end: 20101220
  6. BEVACIZUMAB [Suspect]
     Route: 042
  7. CAPECITABINE [Suspect]
     Indication: COLORECTAL CANCER
     Route: 048
     Dates: start: 20100614

REACTIONS (1)
  - NEUTROPENIA [None]
